FAERS Safety Report 5224270-5 (Version None)
Quarter: 2007Q1

REPORT INFORMATION
  Report Type: 
  Country: None (occurrence: None)
  Receive Date: 20070130
  Receipt Date: 20070118
  Transmission Date: 20070707
  Serious: Yes (Disabling)
  Sender: FDA-Public Use
  Company Number: US-SANOFI-SYNTHELABO-A03200605394

PATIENT
  Sex: Female
  Weight: 87.07 kg

DRUGS (17)
  1. PLAVIX [Suspect]
     Indication: STENT PLACEMENT
     Route: 048
     Dates: start: 20060729
  2. NITROGLYCERIN [Concomitant]
     Dosage: UNK
     Route: 065
     Dates: start: 20060729
  3. VALIUM [Concomitant]
     Dosage: 5MG, 1 TO 2 PER NIGHT
     Route: 048
     Dates: start: 19890101
  4. CO Q-10 [Concomitant]
     Route: 048
     Dates: start: 20060501
  5. FISH OIL [Concomitant]
     Route: 048
  6. GLYBURIDE [Concomitant]
     Route: 048
  7. CENTRUM SILVER [Concomitant]
     Dosage: UNK
     Route: 048
  8. ASPIRIN [Concomitant]
     Dosage: UNK
     Route: 048
     Dates: start: 20060729
  9. ZELNORM [Concomitant]
     Route: 048
  10. SYNTHROID [Concomitant]
     Route: 048
  11. PRINIVIL [Concomitant]
     Route: 048
  12. POTASSIUM ACETATE [Concomitant]
     Route: 048
     Dates: start: 19890101
  13. LASIX [Concomitant]
     Route: 048
     Dates: start: 19890101
  14. PREVACID [Concomitant]
     Route: 048
  15. CARTIA XT [Concomitant]
     Route: 048
  16. COREG [Concomitant]
     Route: 048
     Dates: start: 20060729
  17. TYLENOL [Concomitant]
     Dosage: UNK
     Route: 048

REACTIONS (15)
  - ARTHRALGIA [None]
  - ASTHENIA [None]
  - BACK PAIN [None]
  - CONFUSIONAL STATE [None]
  - CONSTIPATION [None]
  - DIARRHOEA [None]
  - DIZZINESS [None]
  - DYSPNOEA [None]
  - PAIN [None]
  - PHARYNGOLARYNGEAL PAIN [None]
  - PRURITUS [None]
  - PYREXIA [None]
  - SWELLING [None]
  - WALKING DISABILITY [None]
  - WEIGHT INCREASED [None]
